FAERS Safety Report 16678479 (Version 1)
Quarter: 2019Q3

REPORT INFORMATION
  Report Type: Spontaneous
  Country: US (occurrence: US)
  Receive Date: 20190806
  Receipt Date: 20190806
  Transmission Date: 20191004
  Serious: Yes (Other)
  Sender: FDA-Public Use
  Company Number: None

PATIENT
  Age: 37 Year
  Sex: Female

DRUGS (2)
  1. LEUPROLIDE [Suspect]
     Active Substance: LEUPROLIDE
     Indication: INFERTILITY
     Route: 058
     Dates: start: 20190717
  2. LEUPROLIDE 1MG/0.2ML [Concomitant]
     Dates: start: 20190717

REACTIONS (1)
  - Fatigue [None]

NARRATIVE: CASE EVENT DATE: 20190805
